FAERS Safety Report 8173852-X (Version None)
Quarter: 2012Q1

REPORT INFORMATION
  Report Type: 
  Country: None (occurrence: None)
  Receive Date: 20120229
  Receipt Date: 20120215
  Transmission Date: 20120608
  Serious: Yes (Other)
  Sender: FDA-Public Use
  Company Number: GB-ELI_LILLY_AND_COMPANY-GB201202005140

PATIENT
  Sex: Male

DRUGS (5)
  1. LISOPRIL [Concomitant]
     Dosage: 10 MG, UNK
  2. ATENOLOL [Concomitant]
     Dosage: 50 MG, EACH MORNING
  3. ZYPREXA [Suspect]
     Dosage: 20 MG, QD
  4. FORMIN [Concomitant]
     Dosage: 500 MG, TID
  5. SIMVASTATIN [Concomitant]

REACTIONS (3)
  - WHITE BLOOD CELL COUNT DECREASED [None]
  - NEUTROPENIA [None]
  - PLATELET COUNT DECREASED [None]
